FAERS Safety Report 4948458-3 (Version None)
Quarter: 2006Q1

REPORT INFORMATION
  Report Type: 
  Country: None (occurrence: None)
  Receive Date: 20060201
  Receipt Date: 20051110
  Transmission Date: 20060701
  Serious: No
  Sender: FDA-Public Use
  Company Number: 2005PV004228

PATIENT
  Age: 36 Year
  Sex: Female
  Weight: 146.9654 kg

DRUGS (2)
  1. BYETTA [Suspect]
     Indication: HYPOGLYCAEMIA
     Dosage: 5 MCG; BID; SC
     Route: 058
     Dates: start: 20051001, end: 20051110
  2. AMARYL [Concomitant]

REACTIONS (7)
  - EYE SWELLING [None]
  - INJECTION SITE BRUISING [None]
  - INJECTION SITE ERYTHEMA [None]
  - INJECTION SITE SWELLING [None]
  - PRURITUS [None]
  - RASH [None]
  - SWELLING FACE [None]
